FAERS Safety Report 9476514 (Version 1)
Quarter: 2013Q3

REPORT INFORMATION
  Report Type: Spontaneous
  Country: US (occurrence: None)
  Receive Date: 20130823
  Receipt Date: 20130823
  Transmission Date: 20140515
  Serious: Yes (Hospitalization)
  Sender: FDA-Public Use
  Company Number: None

PATIENT
  Age: 58 Year
  Sex: Male
  Weight: 77 kg

DRUGS (1)
  1. TEMODAR [Suspect]
     Indication: BRAIN NEOPLASM MALIGNANT
     Dates: start: 20130726, end: 20130820

REACTIONS (5)
  - Incision site infection [None]
  - Fall [None]
  - Head injury [None]
  - Procedural site reaction [None]
  - Secretion discharge [None]
